FAERS Safety Report 8625577-1 (Version None)
Quarter: 2012Q3

REPORT INFORMATION
  Report Type: 
  Country: None (occurrence: None)
  Receive Date: 20120827
  Receipt Date: 20110620
  Transmission Date: 20120928
  Serious: Yes (Other)
  Sender: FDA-Public Use
  Company Number: PE-ROCHE-1104739

PATIENT
  Sex: Female
  Weight: 56 kg

DRUGS (1)
  1. ISOTRETINOIN [Suspect]
     Indication: ACNE
     Route: 048
     Dates: start: 20101201, end: 20110614

REACTIONS (1)
  - PREGNANCY [None]
